FAERS Safety Report 7109058-2 (Version None)
Quarter: 2010Q4

REPORT INFORMATION
  Report Type: 
  Country: None (occurrence: None)
  Receive Date: 20101117
  Receipt Date: 20101109
  Transmission Date: 20110411
  Serious: Yes (Hospitalization)
  Sender: FDA-Public Use
  Company Number: US-US-EMD SERONO, INC.-7026941

PATIENT
  Sex: Male
  Weight: 70 kg

DRUGS (8)
  1. REBIF [Suspect]
     Indication: MULTIPLE SCLEROSIS
     Route: 058
     Dates: start: 20080817
  2. METHOCARBAMOL [Concomitant]
     Indication: BACK PAIN
     Dates: start: 20050101, end: 20100101
  3. TRAMADOL HCL [Concomitant]
     Indication: BACK PAIN
     Dates: end: 20100101
  4. ATENOLOL [Concomitant]
     Indication: HYPERTENSION
     Dates: start: 20040101
  5. LISINOPRIL [Concomitant]
     Indication: HYPERTENSION
     Dates: start: 20040101
  6. DOXAZOSIN MESYLATE [Concomitant]
     Indication: HYPERTENSION
     Dates: start: 20040101
  7. UNSPECIFIED MEDICATION [Concomitant]
     Indication: PREMEDICATION
  8. DIPHENHYDRAMINE HCL [Concomitant]
     Indication: HYPERSENSITIVITY

REACTIONS (9)
  - BONE PAIN [None]
  - CEREBROVASCULAR ACCIDENT [None]
  - INJECTION SITE ERYTHEMA [None]
  - INJECTION SITE PAIN [None]
  - MUSCULOSKELETAL PAIN [None]
  - NAUSEA [None]
  - NECK PAIN [None]
  - PAIN IN EXTREMITY [None]
  - THYROID FUNCTION TEST ABNORMAL [None]
